FAERS Safety Report 17049914 (Version 1)
Quarter: 2019Q4

REPORT INFORMATION
  Report Type: Spontaneous
  Country: SE (occurrence: SE)
  Receive Date: 20191119
  Receipt Date: 20191119
  Transmission Date: 20200122
  Serious: Yes (Hospitalization)
  Sender: FDA-Public Use
  Company Number: SE-MYLANLABS-2019M1110600

PATIENT
  Age: 23 Year
  Sex: Female

DRUGS (1)
  1. LERGIGAN (PROMETHAZINE HYDROCHLORIDE) [Suspect]
     Active Substance: PROMETHAZINE HYDROCHLORIDE
     Indication: PRODUCT USED FOR UNKNOWN INDICATION
     Dosage: 25 MILLIGRAM, 40-60 ST
     Route: 048
     Dates: start: 20190414, end: 20190414

REACTIONS (8)
  - Heart rate increased [Unknown]
  - Agitation [Unknown]
  - Intentional overdose [Unknown]
  - Amylase increased [Unknown]
  - Hallucination [Unknown]
  - Suicidal ideation [Unknown]
  - Somnolence [Unknown]
  - Akathisia [Unknown]

NARRATIVE: CASE EVENT DATE: 20190414
